FAERS Safety Report 7443049-7 (Version None)
Quarter: 2011Q2

REPORT INFORMATION
  Report Type: 
  Country: None (occurrence: None)
  Receive Date: 20110428
  Receipt Date: 20110415
  Transmission Date: 20111010
  Serious: Yes (Other)
  Sender: FDA-Public Use
  Company Number: US-CELGENEUS-163-21880-11042255

PATIENT
  Sex: Male
  Weight: 77.18 kg

DRUGS (20)
  1. PROVENTIL [Concomitant]
     Route: 065
  2. PRAVASTATIN [Concomitant]
     Route: 065
  3. LUPRON [Concomitant]
     Route: 065
  4. AMITRIPTYLINE HCL [Concomitant]
     Route: 065
  5. ZETIA [Concomitant]
     Route: 065
  6. VITAMIN C [Concomitant]
     Route: 065
  7. FOLIC ACID [Concomitant]
     Route: 065
  8. REVLIMID [Suspect]
     Indication: MULTIPLE MYELOMA
     Dosage: 5 MILLIGRAM
     Route: 048
     Dates: start: 20110201
  9. TRAZODONE HCL [Concomitant]
     Route: 065
  10. PLAVIX [Concomitant]
     Route: 065
  11. NOVOLOG [Concomitant]
     Route: 065
  12. IRON [Concomitant]
     Route: 065
  13. CALCIUM WITH VITAMIN D [Concomitant]
     Route: 065
  14. ACETAMINOPHEN [Concomitant]
     Route: 065
  15. RENAX [Concomitant]
     Route: 065
  16. LYRICA [Concomitant]
     Route: 065
  17. ALBUTEROL [Concomitant]
     Route: 065
  18. DICLOFENAC [Concomitant]
     Route: 065
  19. RENAGEL [Concomitant]
     Route: 065
  20. PRILOSEC [Concomitant]
     Route: 065

REACTIONS (1)
  - BLOOD GLUCOSE INCREASED [None]
